FAERS Safety Report 23687717 (Version 1)
Quarter: 2024Q1

REPORT INFORMATION
  Report Type: Spontaneous
  Country: US (occurrence: US)
  Receive Date: 20240329
  Receipt Date: 20240329
  Transmission Date: 20240409
  Serious: Yes (Other)
  Sender: FDA-Public Use
  Company Number: US-PFIZER INC-202400053362

PATIENT
  Age: 71 Year
  Sex: Female
  Weight: 92.971 kg

DRUGS (3)
  1. PAXLOVID [Suspect]
     Active Substance: NIRMATRELVIR\RITONAVIR
     Indication: COVID-19 treatment
     Dosage: [NIRMATRELVIR 300 MG]/[RITONAVIR 100 MG]; 2X/DAY
     Dates: start: 20240120, end: 20240124
  2. METOPROLOL [Concomitant]
     Active Substance: METOPROLOL
     Dosage: ONCE DAILY PM
     Dates: start: 202012
  3. GABAPENTIN [Concomitant]
     Active Substance: GABAPENTIN
     Dosage: ONCE DAILY PM

REACTIONS (5)
  - Cholelithiasis [Recovered/Resolved]
  - Chest pain [Recovered/Resolved]
  - COVID-19 [Recovered/Resolved]
  - Disease recurrence [Recovered/Resolved]
  - Diarrhoea [Recovered/Resolved]

NARRATIVE: CASE EVENT DATE: 20240121
